FAERS Safety Report 8617815-6 (Version None)
Quarter: 2012Q3

REPORT INFORMATION
  Report Type: 
  Country: None (occurrence: None)
  Receive Date: 20120824
  Receipt Date: 20120327
  Transmission Date: 20120928
  Serious: No
  Sender: FDA-Public Use
  Company Number: US-ASTRAZENECA-2012SE10815

PATIENT
  Age: 86 Year
  Sex: Male
  Weight: 72.6 kg

DRUGS (9)
  1. IBUPROFEN [Concomitant]
     Indication: PAIN IN EXTREMITY
  2. TAMSULOFIN [Concomitant]
     Indication: PROSTATOMEGALY
  3. LIPITOR [Concomitant]
     Indication: BLOOD CHOLESTEROL ABNORMAL
  4. AMLODIPINE [Concomitant]
     Indication: BLOOD PRESSURE ABNORMAL
  5. SYMBICORT [Suspect]
     Indication: COUGH
     Dosage: 160/4.5 MCG, TWO PUFFS BID
     Route: 055
  6. NIMENDA [Concomitant]
     Indication: MEMORY IMPAIRMENT
  7. PRAUVASID [Concomitant]
     Indication: DYSPHAGIA
  8. ARICETT [Concomitant]
     Indication: MEMORY IMPAIRMENT
  9. RAMPERIL [Concomitant]
     Indication: NEUROPATHY PERIPHERAL

REACTIONS (5)
  - PAIN IN EXTREMITY [None]
  - DRUG DOSE OMISSION [None]
  - INCREASED BRONCHIAL SECRETION [None]
  - OFF LABEL USE [None]
  - MUSCULOSKELETAL PAIN [None]
